FAERS Safety Report 8966339 (Version 3)
Quarter: 2012Q4

REPORT INFORMATION
  Report Type: 
  Country: TR (occurrence: TR)
  Receive Date: 20121217
  Receipt Date: 20121231
  Transmission Date: 20130627
  Serious: Yes (Other)
  Sender: FDA-Public Use
  Company Number: PHHY2012TR115437

PATIENT
  Age: 82 Year
  Sex: Female
  Weight: 75 kg

DRUGS (1)
  1. ACLASTA [Suspect]
     Indication: OSTEOPOROSIS
     Dosage: 5 mg/100mL
     Route: 042
     Dates: start: 20121212

REACTIONS (4)
  - Vitreous haemorrhage [Recovered/Resolved]
  - Vision blurred [Unknown]
  - Ocular hyperaemia [Recovering/Resolving]
  - Lacrimation increased [Unknown]
